FAERS Safety Report 25104522 (Version 1)
Quarter: 2025Q1

REPORT INFORMATION
  Report Type: Spontaneous
  Country: JP (occurrence: JP)
  Receive Date: 20250321
  Receipt Date: 20250321
  Transmission Date: 20250408
  Serious: Yes (Other)
  Sender: STRIDES
  Company Number: JP-STRIDES ARCOLAB LIMITED-2025SP003533

PATIENT
  Age: 53 Year
  Sex: Female

DRUGS (9)
  1. ETOPOSIDE [Suspect]
     Active Substance: ETOPOSIDE
     Indication: Mixed adenoneuroendocrine carcinoma
     Route: 065
  2. ETOPOSIDE [Suspect]
     Active Substance: ETOPOSIDE
     Indication: Gallbladder cancer
  3. CISPLATIN [Suspect]
     Active Substance: CISPLATIN
     Indication: Mixed adenoneuroendocrine carcinoma
     Route: 033
     Dates: start: 202204
  4. CISPLATIN [Suspect]
     Active Substance: CISPLATIN
     Indication: Gallbladder cancer
     Route: 065
  5. CISPLATIN [Suspect]
     Active Substance: CISPLATIN
     Route: 065
     Dates: start: 202311
  6. TS-1 [Concomitant]
     Active Substance: GIMERACIL\OTERACIL POTASSIUM\TEGAFUR
     Indication: Mixed adenoneuroendocrine carcinoma
     Route: 048
  7. TS-1 [Concomitant]
     Active Substance: GIMERACIL\OTERACIL POTASSIUM\TEGAFUR
     Indication: Gallbladder cancer
  8. IRINOTECAN [Concomitant]
     Active Substance: IRINOTECAN
     Indication: Mixed adenoneuroendocrine carcinoma
     Route: 033
     Dates: start: 202204
  9. IRINOTECAN [Concomitant]
     Active Substance: IRINOTECAN
     Indication: Gallbladder cancer

REACTIONS (2)
  - Disease progression [Unknown]
  - Drug ineffective for unapproved indication [Unknown]
